FAERS Safety Report 23386467 (Version 2)
Quarter: 2024Q3

REPORT INFORMATION
  Report Type: Spontaneous
  Country: US (occurrence: US)
  Receive Date: 20240110
  Receipt Date: 20240926
  Transmission Date: 20241017
  Serious: No
  Sender: SANOFI AVENTIS
  Company Number: US-SA-SAC20240105000204

PATIENT
  Sex: Male
  Weight: 75.737 kg

DRUGS (1)
  1. DUPIXENT [Suspect]
     Active Substance: DUPILUMAB
     Indication: Dermatitis atopic
     Dosage: 300 MG, QOW
     Route: 058

REACTIONS (5)
  - Allergic cough [Unknown]
  - Secretion discharge [Not Recovered/Not Resolved]
  - Thermal burn [Not Recovered/Not Resolved]
  - Skin swelling [Not Recovered/Not Resolved]
  - Skin haemorrhage [Not Recovered/Not Resolved]
